FAERS Safety Report 24526645 (Version 1)
Quarter: 2024Q4

REPORT INFORMATION
  Report Type: Report from Study
  Country: US (occurrence: US)
  Receive Date: 20241021
  Receipt Date: 20241021
  Transmission Date: 20250114
  Serious: No
  Sender: ROCHE
  Company Number: US-ROCHE-3102484

PATIENT
  Age: 64 Year
  Sex: Male

DRUGS (2)
  1. ZELBORAF [Suspect]
     Active Substance: VEMURAFENIB
     Indication: Histiocytosis
     Dosage: TAKE 1 TABLET BY MOUTH TWICE A DAY
     Route: 048
  2. ZELBORAF [Suspect]
     Active Substance: VEMURAFENIB
     Route: 048

REACTIONS (6)
  - Dementia [Unknown]
  - Decreased appetite [Unknown]
  - Weight decreased [Unknown]
  - Mobility decreased [Unknown]
  - Rash [Unknown]
  - Drug ineffective [Unknown]
